FAERS Safety Report 19937020 (Version 1)
Quarter: 2021Q4

REPORT INFORMATION
  Report Type: Spontaneous
  Country: US (occurrence: US)
  Receive Date: 20211009
  Receipt Date: 20211009
  Transmission Date: 20220303
  Serious: No
  Sender: FDA-Public Use
  Company Number: US-009507513-2109USA007026

PATIENT
  Age: 38 Year
  Sex: Female

DRUGS (1)
  1. ALBUTEROL SULFATE [Suspect]
     Active Substance: ALBUTEROL SULFATE
     Indication: Asthma
     Dosage: AT LEAST ONCE DAILY OR WHEN NEEDED
     Dates: start: 20210906, end: 20210926

REACTIONS (3)
  - Product delivery mechanism issue [Unknown]
  - Poor quality device used [Unknown]
  - Product use complaint [Unknown]

NARRATIVE: CASE EVENT DATE: 20210926
